FAERS Safety Report 10167080 (Version 1)
Quarter: 2014Q2

REPORT INFORMATION
  Report Type: Spontaneous
  Country: HK (occurrence: HK)
  Receive Date: 20140512
  Receipt Date: 20140512
  Transmission Date: 20141212
  Serious: Yes (Other)
  Sender: FDA-Public Use
  Company Number: HK-PFIZER INC-2014126739

PATIENT
  Sex: Female

DRUGS (2)
  1. NORVASC [Suspect]
     Dosage: 5 MG, UNK
  2. NORVASC [Suspect]
     Dosage: 0.5 TABLET OF NORVASC 5MG

REACTIONS (3)
  - Haematochezia [Unknown]
  - Abdominal discomfort [Unknown]
  - Product quality issue [Unknown]
